FAERS Safety Report 5371640-0 (Version None)
Quarter: 2007Q2

REPORT INFORMATION
  Report Type: 
  Country: None (occurrence: None)
  Receive Date: 20070627
  Receipt Date: 20070619
  Transmission Date: 20071010
  Serious: Yes (Other)
  Sender: FDA-Public Use
  Company Number: PHBS2007EC10328

PATIENT
  Age: 65 Year
  Sex: Male

DRUGS (4)
  1. CATAFLAM [Suspect]
     Indication: INFECTION
     Dosage: 50 MG, Q12H
     Route: 048
     Dates: start: 20070618
  2. DICLOFENAC [Suspect]
     Indication: INFECTION
  3. BIODROXIL [Concomitant]
     Indication: INFECTION
     Dosage: 500 MG, Q12H
     Route: 048
  4. CORTICOSTEROID NOS [Concomitant]
     Indication: INFECTION
     Dates: start: 20070618

REACTIONS (5)
  - DRUG TOXICITY [None]
  - PRURITUS [None]
  - RASH [None]
  - SYNCOPE [None]
  - VISION BLURRED [None]
